FAERS Safety Report 9113999 (Version 1)
Quarter: 2013Q1

REPORT INFORMATION
  Report Type: Spontaneous
  Country: US (occurrence: None)
  Receive Date: 20130220
  Receipt Date: 20130220
  Transmission Date: 20140127
  Serious: Yes (Death, Hospitalization)
  Sender: FDA-Public Use
  Company Number: None

PATIENT
  Sex: Male
  Weight: 83 kg

DRUGS (2)
  1. CARBOPLATIN [Suspect]
  2. PACLITAXEL (TAXOL) [Suspect]

REACTIONS (16)
  - Diarrhoea [None]
  - Nausea [None]
  - Confusional state [None]
  - Hypovolaemic shock [None]
  - Atrial fibrillation [None]
  - Blood sodium decreased [None]
  - Dehydration [None]
  - Renal failure acute [None]
  - Pain [None]
  - Anxiety [None]
  - Agitation [None]
  - Unresponsive to stimuli [None]
  - Hypoxia [None]
  - Bradycardia [None]
  - Apnoea [None]
  - Convulsion [None]
